FAERS Safety Report 5043948-X (Version None)
Quarter: 2006Q2

REPORT INFORMATION
  Report Type: 
  Country: None (occurrence: None)
  Receive Date: 20060601
  Receipt Date: 20060419
  Transmission Date: 20061013
  Serious: No
  Sender: FDA-Public Use
  Company Number: 2006-BP-04449BP

PATIENT
  Age: 80 Year
  Sex: Female

DRUGS (9)
  1. SPIRIVA [Suspect]
     Indication: CHRONIC OBSTRUCTIVE PULMONARY DISEASE
     Dosage: 18 MCG (18 MCG) IH
     Route: 055
     Dates: start: 20041001
  2. LEVOXYL [Suspect]
     Indication: HYPOTHYROIDISM
     Route: 065
  3. COREG [Concomitant]
  4. ATACAND [Concomitant]
  5. AMBIEN [Concomitant]
  6. SPIRONOLACTONE [Concomitant]
  7. ASCORBIC ACID [Concomitant]
  8. CENTRUM SILVER (CENTRUM SILVER) [Concomitant]
  9. ACETAMINOPHEN [Concomitant]

REACTIONS (3)
  - DYSPHAGIA [None]
  - TONGUE BLACK HAIRY [None]
  - TONGUE COATED [None]
